FAERS Safety Report 9264509 (Version 2)
Quarter: 2013Q2

REPORT INFORMATION
  Report Type: Spontaneous
  Country: IE (occurrence: IE)
  Receive Date: 20130501
  Receipt Date: 20130510
  Transmission Date: 20140414
  Serious: Yes (Other)
  Sender: FDA-Public Use
  Company Number: IE-AMGEN-IRLSP2013023490

PATIENT
  Age: 40 Year
  Sex: Female

DRUGS (5)
  1. ENBREL [Suspect]
     Indication: RHEUMATOID ARTHRITIS
     Dosage: 50 MG, QWK
     Dates: start: 201108
  2. MEFENAMIC ACID [Concomitant]
     Indication: PAIN
     Dosage: 500 MG, 3X/DAY
     Route: 048
     Dates: start: 201105, end: 201303
  3. PARACETAMOL [Concomitant]
     Indication: PAIN
     Dosage: 1 G, 4X/DAY AS NEEDED
     Dates: end: 201303
  4. ESOMEPRAZOLE [Concomitant]
     Indication: PROPHYLAXIS
     Dosage: 20 MG, 1X/DAY
     Dates: start: 201111, end: 201303
  5. DIFENE [Concomitant]
     Indication: PAIN
     Dosage: UNK UNK, AS NECESSARY, 4/6 AS REQUIRED
     Dates: start: 201303

REACTIONS (4)
  - Discomfort [Unknown]
  - Product quality issue [Unknown]
  - Drug ineffective [Unknown]
  - Injection site pain [Unknown]
